FAERS Safety Report 5542950-9 (Version None)
Quarter: 2007Q4

REPORT INFORMATION
  Report Type: 
  Country: None (occurrence: None)
  Receive Date: 20071210
  Receipt Date: 20071130
  Transmission Date: 20080405
  Serious: Yes (Hospitalization)
  Sender: FDA-Public Use
  Company Number: US-GILEAD-2007-0014445

PATIENT
  Sex: Female

DRUGS (2)
  1. LETAIRIS [Suspect]
     Indication: PULMONARY HYPERTENSION
     Dates: start: 20071016, end: 20071120
  2. TRACLEER [Concomitant]
     Dates: end: 20071015

REACTIONS (4)
  - DYSPNOEA [None]
  - HEADACHE [None]
  - PNEUMONIA [None]
  - SINUSITIS [None]
